FAERS Safety Report 7247708-0 (Version None)
Quarter: 2011Q1

REPORT INFORMATION
  Report Type: 
  Country: None (occurrence: None)
  Receive Date: 20110127
  Receipt Date: 20110120
  Transmission Date: 20110831
  Serious: Yes (Other)
  Sender: FDA-Public Use
  Company Number: US-MERCK-1012USA03691

PATIENT
  Age: 72 Year
  Sex: Female

DRUGS (7)
  1. LIPITOR [Concomitant]
     Route: 065
  2. COZAAR [Suspect]
     Indication: HYPERTENSION
     Route: 048
     Dates: start: 20071113
  3. COZAAR [Suspect]
     Route: 048
     Dates: end: 20071113
  4. PLAVIX [Concomitant]
     Route: 065
  5. TOPROL-XL [Concomitant]
     Route: 065
  6. METOPROLOL [Concomitant]
     Route: 065
  7. COZAAR [Suspect]
     Route: 048
     Dates: start: 20101101

REACTIONS (3)
  - DRY THROAT [None]
  - CORONARY ARTERY DISEASE [None]
  - COUGH [None]
